FAERS Safety Report 6852683-4 (Version None)
Quarter: 2010Q3

REPORT INFORMATION
  Report Type: 
  Country: None (occurrence: None)
  Receive Date: 20100717
  Receipt Date: 20071120
  Transmission Date: 20110219
  Serious: No
  Sender: FDA-Public Use
  Company Number: US-PFIZER INC-2007099535

PATIENT
  Sex: Male
  Weight: 84.1 kg

DRUGS (5)
  1. CHANTIX [Suspect]
     Indication: SMOKING CESSATION THERAPY
     Route: 048
     Dates: start: 20071104, end: 20071118
  2. DEPAKOTE [Concomitant]
  3. CLONAZEPAM [Concomitant]
  4. ALBUTEROL [Concomitant]
  5. SPIRIVA [Concomitant]

REACTIONS (3)
  - AFFECT LABILITY [None]
  - ANGER [None]
  - DEPRESSION [None]
